FAERS Safety Report 9437574 (Version 1)
Quarter: 2013Q3

REPORT INFORMATION
  Report Type: Spontaneous
  Country: US (occurrence: None)
  Receive Date: 20130731
  Receipt Date: 20130731
  Transmission Date: 20140515
  Serious: Yes (Other)
  Sender: FDA-Public Use
  Company Number: 2013P1013250

PATIENT
  Age: 48 Year
  Sex: Female

DRUGS (1)
  1. GLYBURIDE [Suspect]

REACTIONS (9)
  - Unresponsive to stimuli [None]
  - Miosis [None]
  - Snoring [None]
  - Urinary incontinence [None]
  - Blood glucose decreased [None]
  - Body temperature decreased [None]
  - Drug abuse [None]
  - Drug level increased [None]
  - Toxicity to various agents [None]
